FAERS Safety Report 10684584 (Version 2)
Quarter: 2015Q1

REPORT INFORMATION
  Report Type: Spontaneous
  Country: PL (occurrence: PL)
  Receive Date: 20141231
  Receipt Date: 20150105
  Transmission Date: 20150720
  Serious: Yes (Hospitalization, Other)
  Sender: FDA-Public Use
  Company Number: PHHY2014PL168073

PATIENT
  Age: 62 Year
  Sex: Female

DRUGS (10)
  1. 5-FLUOROURACIL [Suspect]
     Active Substance: FLUOROURACIL
     Indication: COLORECTAL CANCER
     Route: 065
  2. CICLOSPORIN [Suspect]
     Active Substance: CYCLOSPORINE
     Indication: IMMUNOSUPPRESSION
     Route: 065
  3. CYCLOPHOSPHAMIDE. [Suspect]
     Active Substance: CYCLOPHOSPHAMIDE
     Indication: IMMUNOSUPPRESSION
     Route: 065
  4. VINCRISTINE [Suspect]
     Active Substance: VINCRISTINE
     Indication: COLORECTAL CANCER
     Route: 065
  5. LEUCOVORIN [Suspect]
     Active Substance: LEUCOVORIN
     Indication: COLORECTAL CANCER
  6. METHYLPREDNISOLONE. [Suspect]
     Active Substance: METHYLPREDNISOLONE
     Indication: IMMUNOSUPPRESSION
     Route: 065
  7. EPTACOG ALFA [Suspect]
     Active Substance: COAGULATION FACTOR VIIA (RECOMBINANT)
     Indication: IMMUNOSUPPRESSION
     Route: 065
  8. OXALIPLATIN. [Suspect]
     Active Substance: OXALIPLATIN
     Indication: COLORECTAL CANCER
     Route: 065
  9. PLASMA [Concomitant]
     Active Substance: HUMAN PLASMA
     Indication: PRODUCT USED FOR UNKNOWN INDICATION
     Route: 065
  10. PREDNISONE. [Suspect]
     Active Substance: PREDNISONE
     Indication: COLORECTAL CANCER
     Route: 065

REACTIONS (7)
  - Disease progression [Unknown]
  - Drug ineffective [Unknown]
  - Ileus [Unknown]
  - Colorectal cancer [Recovering/Resolving]
  - Hypotension [Unknown]
  - General physical health deterioration [Recovering/Resolving]
  - Abdominal pain [Recovering/Resolving]
